FAERS Safety Report 9654445 (Version 1)
Quarter: 2013Q4

REPORT INFORMATION
  Report Type: Spontaneous
  Country: US (occurrence: US)
  Receive Date: 20131029
  Receipt Date: 20131029
  Transmission Date: 20140711
  Serious: Yes (Hospitalization, Other)
  Sender: FDA-Public Use
  Company Number: US-ACTAVIS-2013-19009

PATIENT
  Age: 21 Year
  Sex: Female

DRUGS (2)
  1. DOXYCYCLINE (WATSON LABORATORIES) [Suspect]
     Indication: UPPER RESPIRATORY TRACT INFECTION
     Dosage: UNK
     Route: 065
  2. CELEXA                             /00582602/ [Concomitant]
     Indication: ANXIETY
     Dosage: 60 MG, DAILY
     Route: 065

REACTIONS (1)
  - Pancreatitis acute [Recovered/Resolved]
